FAERS Safety Report 17049525 (Version 9)
Quarter: 2020Q4

REPORT INFORMATION
  Report Type: Report from Study
  Country: US (occurrence: US)
  Receive Date: 20191119
  Receipt Date: 20201022
  Transmission Date: 20210113
  Serious: No
  Sender: FDA-Public Use
  Company Number: NVSC2019US040920

PATIENT
  Age: 35 Year
  Sex: Male

DRUGS (1)
  1. COSENTYX [Suspect]
     Active Substance: SECUKINUMAB
     Indication: PSORIASIS
     Dosage: 300 MG, QMO
     Route: 058
     Dates: start: 201909

REACTIONS (6)
  - Product dose omission issue [Unknown]
  - Ear lobe infection [Unknown]
  - Ear pain [Unknown]
  - Rash macular [Unknown]
  - Rash [Not Recovered/Not Resolved]
  - Skin discolouration [Unknown]

NARRATIVE: CASE EVENT DATE: 201910
